FAERS Safety Report 21535244 (Version 1)
Quarter: 2022Q4

REPORT INFORMATION
  Report Type: Spontaneous
  Country: US (occurrence: US)
  Receive Date: 20221101
  Receipt Date: 20221101
  Transmission Date: 20230113
  Serious: No
  Sender: FDA-Public Use
  Company Number: US-MIGRATION_PFIZER-2022BHV001993

PATIENT
  Age: 78 Year
  Sex: Female
  Weight: 74.456 kg

DRUGS (3)
  1. NURTEC ODT [Suspect]
     Active Substance: RIMEGEPANT SULFATE
     Indication: Headache
     Dosage: STARTED MAYBE 6 MONTHS AGO; TAB/CAP MARKING: WHITE/ROUND
     Route: 048
     Dates: start: 202202
  2. NURTEC ODT [Suspect]
     Active Substance: RIMEGEPANT SULFATE
     Indication: Migraine
     Dosage: FOR PREVENTION; TAB/CAP MARKING: WHITE/ROUND
     Route: 048
     Dates: start: 20220717
  3. BUTALBITAL [Concomitant]
     Active Substance: BUTALBITAL
     Indication: Headache
     Dosage: TAKING FOR YEARS; STOPPED A WEEK AGO
     Route: 065
     Dates: end: 202207

REACTIONS (1)
  - Drug ineffective [Not Recovered/Not Resolved]

NARRATIVE: CASE EVENT DATE: 20220101
